FAERS Safety Report 8067782-1 (Version None)
Quarter: 2012Q1

REPORT INFORMATION
  Report Type: 
  Country: None (occurrence: None)
  Receive Date: 20120124
  Receipt Date: 20120118
  Transmission Date: 20120608
  Serious: Yes (Life-Threatening, Other)
  Sender: FDA-Public Use
  Company Number: JP-PFIZER INC-2011295227

PATIENT
  Age: 64 Year
  Sex: Female

DRUGS (6)
  1. RISPERIDONE [Concomitant]
  2. FERROUS CITRATE [Concomitant]
     Indication: ANAEMIA
     Dosage: 50 MG, 2X/DAY
     Route: 048
     Dates: start: 20111103
  3. DICLOFENAC SODIUM [Concomitant]
     Indication: PAIN
     Dosage: 50 MG, AS NEEDED
     Route: 048
     Dates: start: 20111029
  4. SULFAMETHOXAZOLE AND TRIMETHOPRIM [Suspect]
     Indication: OSTEOMYELITIS
     Dosage: UNK
     Route: 048
     Dates: start: 20111102, end: 20111206
  5. CLINDAMYCIN HCL [Suspect]
     Indication: OSTEOMYELITIS
     Dosage: 300 MG, 3X/DAY
     Route: 048
     Dates: start: 20111102, end: 20111206
  6. LEVOFLOXACIN [Suspect]
     Indication: OSTEOMYELITIS
     Dosage: 500 MG, 1X/DAY
     Route: 048
     Dates: start: 20111020, end: 20111206

REACTIONS (1)
  - PANCYTOPENIA [None]
